FAERS Safety Report 5206990-1 (Version None)
Quarter: 2007Q1

REPORT INFORMATION
  Report Type: 
  Country: None (occurrence: None)
  Receive Date: 20070112
  Receipt Date: 20070104
  Transmission Date: 20070707
  Serious: Yes (Other)
  Sender: FDA-Public Use
  Company Number: GB-NOVOPROD-259727

PATIENT
  Sex: Female

DRUGS (1)
  1. LEVEMIR [Suspect]
     Dosage: 20 IU, QD
     Route: 058
     Dates: start: 20050629

REACTIONS (3)
  - CAESAREAN SECTION [None]
  - COMPLICATION OF PREGNANCY [None]
  - PREGNANCY [None]
